FAERS Safety Report 6805450-1 (Version None)
Quarter: 2010Q2

REPORT INFORMATION
  Report Type: 
  Country: None (occurrence: None)
  Receive Date: 20100628
  Receipt Date: 20071115
  Transmission Date: 20101027
  Serious: No
  Sender: FDA-Public Use
  Company Number: US-PFIZER INC-2007098236

PATIENT
  Sex: Female
  Weight: 65.9 kg

DRUGS (4)
  1. GEODON [Suspect]
     Indication: ANXIETY
     Route: 048
     Dates: start: 20070511, end: 20071112
  2. GEODON [Suspect]
     Indication: SLEEP DISORDER
  3. WARFARIN [Concomitant]
  4. CITALOPRAM [Concomitant]
     Indication: DEPRESSION

REACTIONS (1)
  - INSOMNIA [None]
